FAERS Safety Report 7733479-8 (Version None)
Quarter: 2011Q3

REPORT INFORMATION
  Report Type: 
  Country: None (occurrence: None)
  Receive Date: 20110907
  Receipt Date: 20110902
  Transmission Date: 20111222
  Serious: Yes (Death)
  Sender: FDA-Public Use
  Company Number: NL-CELGENEUS-114-21880-10042347

PATIENT
  Age: 60 Year
  Sex: Male
  Weight: 99 kg

DRUGS (10)
  1. REVLIMID [Suspect]
     Dosage: 12.5 MILLIGRAM
     Route: 048
     Dates: start: 20100412, end: 20100413
  2. REVLIMID [Suspect]
     Indication: MULTIPLE MYELOMA
     Dosage: 12.5 MILLIGRAM
     Route: 048
     Dates: start: 20100118
  3. TEMAZEPAM [Concomitant]
     Dosage: 10 MILLIGRAM
     Route: 048
     Dates: start: 20100105
  4. DEXAMETHASONE [Suspect]
     Indication: MULTIPLE MYELOMA
     Route: 048
     Dates: start: 20100118
  5. OXAZEPAM [Concomitant]
     Dosage: 10 MILLIGRAM
     Route: 048
     Dates: start: 20100105
  6. GLICLAZIDE [Concomitant]
     Dosage: 90 MILLIGRAM
     Route: 048
     Dates: start: 20100105
  7. MORFINE SULFATE [Concomitant]
     Dosage: 40 MILLIGRAM
     Route: 048
  8. DEXAMETHASONE [Suspect]
     Route: 048
     Dates: start: 20100412, end: 20100413
  9. OXYCODONE HCL [Concomitant]
     Dosage: 5 MILLIGRAM
     Route: 048
     Dates: start: 20100105
  10. ACETAMINOPHEN [Concomitant]
     Dosage: 3000 MILLIGRAM
     Route: 048

REACTIONS (1)
  - MYELODYSPLASTIC SYNDROME [None]
